FAERS Safety Report 6947520-3 (Version None)
Quarter: 2010Q3

REPORT INFORMATION
  Report Type: 
  Country: None (occurrence: None)
  Receive Date: 20100827
  Receipt Date: 20090916
  Transmission Date: 20110219
  Serious: No
  Sender: FDA-Public Use
  Company Number: US-ABBOTT-09P-163-0598085-00

PATIENT
  Sex: Female
  Weight: 72.64 kg

DRUGS (8)
  1. NIASPAN [Suspect]
     Indication: BLOOD CHOLESTEROL INCREASED
     Route: 048
     Dates: start: 20090723
  2. NIASPAN [Suspect]
     Indication: BLOOD TRIGLYCERIDES INCREASED
  3. AVALIDE [Concomitant]
     Indication: HYPERTENSION
     Dosage: 300/25
     Route: 048
  4. TOPROL-XL [Concomitant]
     Indication: HYPERTENSION
     Route: 048
  5. ASPIRIN [Concomitant]
     Indication: PRODUCT USED FOR UNKNOWN INDICATION
  6. CARDURA [Concomitant]
     Indication: HYPERTENSION
     Dosage: 1/2 TABLET DAILY
     Route: 048
  7. AMLODIPINE [Concomitant]
     Indication: HYPERTENSION
  8. SYNTHROID [Concomitant]
     Indication: PRODUCT USED FOR UNKNOWN INDICATION
     Dosage: 88MCG ALTERNATED WITH 100 MCG
     Route: 048

REACTIONS (5)
  - DRUG INEFFECTIVE [None]
  - HAEMORRHOIDAL HAEMORRHAGE [None]
  - HEART RATE DECREASED [None]
  - HYPOTENSION [None]
  - MYALGIA [None]
